FAERS Safety Report 6257206-9 (Version None)
Quarter: 2009Q3

REPORT INFORMATION
  Report Type: 
  Country: None (occurrence: None)
  Receive Date: 20090706
  Receipt Date: 20090623
  Transmission Date: 20100115
  Serious: Yes (Other)
  Sender: FDA-Public Use
  Company Number: DE-ELI_LILLY_AND_COMPANY-DE200906005417

PATIENT
  Sex: Female

DRUGS (2)
  1. ZYPREXA [Suspect]
     Route: 048
     Dates: start: 20070101
  2. ZYPREXA [Suspect]

REACTIONS (1)
  - ANAPHYLACTIC SHOCK [None]
